FAERS Safety Report 5697238-2 (Version None)
Quarter: 2008Q2

REPORT INFORMATION
  Report Type: 
  Country: None (occurrence: None)
  Receive Date: 20080408
  Receipt Date: 20070725
  Transmission Date: 20081010
  Serious: No
  Sender: FDA-Public Use
  Company Number: US-BAYER-US-2007-027635

PATIENT
  Age: 23 Year
  Sex: Female
  Weight: 60 kg

DRUGS (1)
  1. YASMIN [Suspect]
     Indication: ORAL CONTRACEPTION
     Route: 048
     Dates: start: 20070623

REACTIONS (9)
  - DIZZINESS [None]
  - HEADACHE [None]
  - HYPOAESTHESIA [None]
  - HYPOAESTHESIA FACIAL [None]
  - MALAISE [None]
  - TINNITUS [None]
  - VISION BLURRED [None]
  - VISUAL DISTURBANCE [None]
  - VOMITING [None]
